FAERS Safety Report 15656755 (Version 1)
Quarter: 2018Q4

REPORT INFORMATION
  Report Type: Spontaneous
  Country: CN (occurrence: CN)
  Receive Date: 20181126
  Receipt Date: 20181126
  Transmission Date: 20190205
  Serious: Yes (Hospitalization, Other)
  Sender: FDA-Public Use
  Company Number: CN-NOVOPROD-633947

PATIENT
  Age: 66 Year
  Sex: Female
  Weight: 43 kg

DRUGS (2)
  1. NOVORAPID [Suspect]
     Active Substance: INSULIN ASPART
     Indication: DIABETES MELLITUS
     Dosage: 34 U, QD,12 U IN THE MORNING, 10 U AT NOON, 10 U IN THE EVENING, TID, SUBCUTANEOUSLY34 U, QD
     Route: 058
     Dates: start: 20180801, end: 20180901
  2. LANTUS [Suspect]
     Active Substance: INSULIN GLARGINE
     Indication: DIABETES MELLITUS
     Dosage: 10 U, QD IN THE EVENING
     Route: 058
     Dates: start: 20180801, end: 20180831

REACTIONS (3)
  - Decreased appetite [Unknown]
  - Hypoglycaemia [Recovered/Resolved]
  - Condition aggravated [Unknown]

NARRATIVE: CASE EVENT DATE: 20180901
